FAERS Safety Report 9478262 (Version 2)
Quarter: 2013Q3

REPORT INFORMATION
  Report Type: Spontaneous
  Country: US (occurrence: None)
  Receive Date: 20130822
  Receipt Date: 20130918
  Transmission Date: 20140515
  Serious: Yes (Other)
  Sender: FDA-Public Use
  Company Number: 2013US002285

PATIENT
  Age: 79 Year
  Sex: Female

DRUGS (1)
  1. ICLUSIG [Suspect]
     Indication: CHRONIC MYELOID LEUKAEMIA
     Route: 048

REACTIONS (7)
  - Grand mal convulsion [None]
  - Encephalopathy [None]
  - Cerebrovascular accident [None]
  - Tumour lysis syndrome [None]
  - Hyponatraemia [None]
  - Hypertension [None]
  - Pyrexia [None]
